FAERS Safety Report 13052968 (Version 1)
Quarter: 2016Q4

REPORT INFORMATION
  Report Type: Spontaneous
  Country: FR (occurrence: FR)
  Receive Date: 20161222
  Receipt Date: 20161222
  Transmission Date: 20170207
  Serious: Yes (Death, Other)
  Sender: FDA-Public Use
  Company Number: FR-CIPLA LTD.-2016FR23670

PATIENT

DRUGS (3)
  1. PACLITAXEL. [Suspect]
     Active Substance: PACLITAXEL
     Indication: CLEAR CELL ENDOMETRIAL CARCINOMA
     Dosage: UNK, SIX CYCLES
     Route: 065
  2. TOPOTECAN [Suspect]
     Active Substance: TOPOTECAN HYDROCHLORIDE
     Indication: CLEAR CELL ENDOMETRIAL CARCINOMA
     Dosage: UNK, FOUR CYCLES
     Route: 065
  3. CARBOPLATIN. [Suspect]
     Active Substance: CARBOPLATIN
     Indication: CLEAR CELL ENDOMETRIAL CARCINOMA
     Dosage: UNK, SIX CYCLES
     Route: 065

REACTIONS (8)
  - Peritonitis [Unknown]
  - Postoperative wound infection [Unknown]
  - General physical health deterioration [Unknown]
  - Death [Fatal]
  - Urogenital fistula [Unknown]
  - Intestinal fistula [Unknown]
  - Subileus [Unknown]
  - Neoplasm recurrence [Unknown]
